FAERS Safety Report 17601860 (Version 1)
Quarter: 2020Q1

REPORT INFORMATION
  Report Type: Spontaneous
  Country: CA (occurrence: CA)
  Receive Date: 20200331
  Receipt Date: 20200331
  Transmission Date: 20200409
  Serious: Yes (Other)
  Sender: FDA-Public Use
  Company Number: CA-ORION CORPORATION ORION PHARMA-TREX2020-1520

PATIENT
  Age: 27 Year
  Sex: Male
  Weight: 85 kg

DRUGS (2)
  1. METHOTREXATE (TRADE NAME UNKNOWN) [Suspect]
     Active Substance: METHOTREXATE
     Indication: PRODUCT USED FOR UNKNOWN INDICATION
     Route: 048
  2. REMICADE [Concomitant]
     Active Substance: INFLIXIMAB
     Dosage: DUE 01-APR-2020
     Route: 065

REACTIONS (2)
  - Anal fistula [Not Recovered/Not Resolved]
  - Fistula discharge [Unknown]
